FAERS Safety Report 5776642-8 (Version None)
Quarter: 2008Q2

REPORT INFORMATION
  Report Type: 
  Country: None (occurrence: None)
  Receive Date: 20080618
  Receipt Date: 20080609
  Transmission Date: 20081010
  Serious: Yes (Hospitalization)
  Sender: FDA-Public Use
  Company Number: DE-BRISTOL-MYERS SQUIBB COMPANY-14213102

PATIENT
  Age: 72 Year
  Sex: Male

DRUGS (10)
  1. CETUXIMAB [Suspect]
     Indication: NON-SMALL CELL LUNG CANCER
     Dosage: RECENT DOSE OF INFUSION WAS GIVEN ON 04-JUN-2008.
     Route: 042
     Dates: start: 20080430
  2. CARBOPLATIN [Suspect]
     Indication: NON-SMALL CELL LUNG CANCER
  3. DOCETAXEL [Suspect]
     Indication: NON-SMALL CELL LUNG CANCER
     Route: 042
  4. ALLOPURINOL [Concomitant]
  5. NEXIUM [Concomitant]
  6. IBUROFEN [Concomitant]
  7. ZOPICLONE [Concomitant]
  8. SPIRIVA [Concomitant]
  9. FORADIL [Concomitant]
  10. NOVALGIN [Concomitant]

REACTIONS (2)
  - ARTHRITIS [None]
  - PYREXIA [None]
